FAERS Safety Report 9373147 (Version 1)
Quarter: 2013Q2

REPORT INFORMATION
  Report Type: Spontaneous
  Country: RU (occurrence: RU)
  Receive Date: 20130627
  Receipt Date: 20130627
  Transmission Date: 20140414
  Serious: Yes (Other)
  Sender: FDA-Public Use
  Company Number: RU-PFIZER INC-2013188339

PATIENT
  Sex: 0

DRUGS (1)
  1. LYRICA [Suspect]
     Dosage: 0.9-1.2 G PER DAY: 0.3 G 3-4 TIMES A DAY

REACTIONS (9)
  - Drug dependence [Unknown]
  - Drug abuse [Unknown]
  - Withdrawal syndrome [Unknown]
  - Insomnia [Unknown]
  - Anxiety [Unknown]
  - Aggression [Unknown]
  - Chills [Unknown]
  - Hyperhidrosis [Unknown]
  - Depressed mood [Unknown]
